FAERS Safety Report 4386480-9 (Version None)
Quarter: 2004Q2

REPORT INFORMATION
  Report Type: 
  Country: None (occurrence: None)
  Receive Date: 20040623
  Receipt Date: 20040607
  Transmission Date: 20050107
  Serious: Yes (Hospitalization)
  Sender: FDA-Public Use
  Company Number: 2004EU001180

PATIENT
  Age: 62 Year
  Sex: Male

DRUGS (4)
  1. PROGRAF [Suspect]
     Indication: LUNG TRANSPLANT
     Dosage: 5.00 MG, BID, ORAL
     Route: 048
     Dates: start: 20021008, end: 20040129
  2. PREDNISOLONE [Concomitant]
  3. BACTRIM [Concomitant]
  4. CELLCEPT [Concomitant]

REACTIONS (3)
  - CEREBRAL HAEMORRHAGE [None]
  - COGNITIVE DISORDER [None]
  - PULMONARY EMBOLISM [None]
